FAERS Safety Report 6239366-9 (Version None)
Quarter: 2009Q2

REPORT INFORMATION
  Report Type: 
  Country: None (occurrence: None)
  Receive Date: 20090622
  Receipt Date: 20090410
  Transmission Date: 20091009
  Serious: Yes (Hospitalization)
  Sender: FDA-Public Use
  Company Number: TR-ELI_LILLY_AND_COMPANY-TR200906003264

PATIENT
  Age: 73 Year
  Sex: Female

DRUGS (4)
  1. HUMALOG [Suspect]
     Indication: DIABETES MELLITUS
     Dosage: 8 IU, EACH MORNING
     Route: 058
     Dates: start: 20080408
  2. HUMALOG [Suspect]
     Dosage: 8 IU, AFTERNOON
     Route: 058
     Dates: start: 20080408
  3. HUMALOG [Suspect]
     Dosage: 8 IU, EACH EVENING
     Route: 058
     Dates: start: 20080408
  4. LANTUS [Concomitant]
     Indication: DIABETES MELLITUS
     Dosage: 24 IU, EACH EVENING
     Route: 065

REACTIONS (5)
  - CHOLELITHIASIS [None]
  - GALLBLADDER DISORDER [None]
  - HYPERGLYCAEMIA [None]
  - HYPERTENSION [None]
  - INFECTION [None]
